FAERS Safety Report 7154376-5 (Version None)
Quarter: 2010Q4

REPORT INFORMATION
  Report Type: 
  Country: None (occurrence: None)
  Receive Date: 20101213
  Receipt Date: 20101029
  Transmission Date: 20110411
  Serious: Yes (Death, Life-Threatening, Other)
  Sender: FDA-Public Use
  Company Number: US-BAXTER-2008BH002858

PATIENT
  Age: 53 Year
  Sex: Male
  Weight: 136 kg

DRUGS (24)
  1. HEPARIN SODIUM INJECTION [Suspect]
     Indication: ATRIAL FIBRILLATION
     Route: 042
     Dates: start: 20080215, end: 20080215
  2. HEPARIN SODIUM AND .45% SODIUM CHLORIDE 250 ML [Suspect]
     Indication: ATRIAL FLUTTER
     Route: 042
     Dates: start: 20080215, end: 20080215
  3. HEPARIN SODIUM AND .45% SODIUM CHLORIDE 250 ML [Suspect]
     Route: 042
     Dates: start: 20080216, end: 20080217
  4. HOSPIRA BRANDED HEPARIN INFUSION [Concomitant]
     Indication: ATRIAL FIBRILLATION
     Route: 042
     Dates: start: 20080215
  5. LOPRESSOR [Concomitant]
     Indication: ATRIAL FIBRILLATION
     Route: 065
     Dates: start: 20080215, end: 20080215
  6. ASPIRIN [Concomitant]
     Indication: PRODUCT USED FOR UNKNOWN INDICATION
     Route: 048
  7. ATORVASTATIN [Concomitant]
     Indication: PRODUCT USED FOR UNKNOWN INDICATION
     Route: 048
  8. HUMALOG [Concomitant]
     Indication: TYPE 1 DIABETES MELLITUS
     Route: 058
  9. PENTOXIFYLLINE [Concomitant]
     Indication: PRODUCT USED FOR UNKNOWN INDICATION
     Route: 048
  10. PROZAC [Concomitant]
     Indication: PRODUCT USED FOR UNKNOWN INDICATION
     Route: 048
  11. ALPRAZOLAM [Concomitant]
     Indication: PRODUCT USED FOR UNKNOWN INDICATION
     Route: 048
  12. DEMADEX [Concomitant]
     Indication: PRODUCT USED FOR UNKNOWN INDICATION
     Route: 048
  13. ALDACTONE [Concomitant]
     Indication: PRODUCT USED FOR UNKNOWN INDICATION
     Route: 048
  14. SPIRONOLACTONE [Concomitant]
     Indication: PRODUCT USED FOR UNKNOWN INDICATION
     Route: 048
  15. ZAROXOLYN [Concomitant]
     Indication: PRODUCT USED FOR UNKNOWN INDICATION
     Route: 048
  16. MAGNESIUM OXIDE [Concomitant]
     Indication: PRODUCT USED FOR UNKNOWN INDICATION
     Route: 048
  17. POTASSIUM CHLORIDE [Concomitant]
     Indication: HYPOKALAEMIA
     Route: 048
  18. ALLOPURINOL [Concomitant]
     Indication: PRODUCT USED FOR UNKNOWN INDICATION
     Route: 048
  19. NEURONTIN [Concomitant]
     Indication: PRODUCT USED FOR UNKNOWN INDICATION
     Route: 048
  20. TYLENOL W/ CODEINE [Concomitant]
     Indication: PRODUCT USED FOR UNKNOWN INDICATION
     Route: 048
  21. LEVOXYL [Concomitant]
     Indication: HYPOTHYROIDISM
     Route: 048
  22. WARFARIN SODIUM [Concomitant]
     Indication: ATRIAL FLUTTER
     Route: 048
     Dates: start: 20080215
  23. CARDIZEM [Concomitant]
     Indication: ATRIAL FLUTTER
     Route: 042
     Dates: start: 20080215
  24. DIGOXIN [Concomitant]
     Indication: ATRIAL FLUTTER
     Route: 042
     Dates: start: 20080215

REACTIONS (22)
  - ATRIAL FLUTTER [None]
  - CARDIAC ARREST [None]
  - CARDIOGENIC SHOCK [None]
  - DEVICE RELATED INFECTION [None]
  - DIABETES MELLITUS [None]
  - DIZZINESS [None]
  - ENTEROCOCCAL INFECTION [None]
  - HAEMODIALYSIS [None]
  - HEADACHE [None]
  - HEPARIN-INDUCED THROMBOCYTOPENIA [None]
  - HEPATIC FAILURE [None]
  - HYPERHIDROSIS [None]
  - HYPOTENSION [None]
  - ISCHAEMIC HEPATITIS [None]
  - MALAISE [None]
  - MULTI-ORGAN FAILURE [None]
  - MYOCARDIAL INFARCTION [None]
  - NAUSEA [None]
  - NO THERAPEUTIC RESPONSE [None]
  - PULMONARY HYPERTENSION [None]
  - RESPIRATORY FAILURE [None]
  - WHITE BLOOD CELL COUNT INCREASED [None]
